FAERS Safety Report 7714163 (Version 2)
Quarter: 2014Q1

REPORT INFORMATION
  Report Type: Spontaneous
  Country: US (occurrence: US)
  Receive Date: 20101216
  Receipt Date: 20140116
  Transmission Date: 20141002
  Serious: Yes (Other)
  Sender: FDA-Public Use
  Company Number: US-ROCHE-724514

PATIENT
  Age: 21 Year
  Sex: Female
  Weight: 81.6 kg

DRUGS (5)
  1. ACCUTANE [Suspect]
     Indication: ACNE
     Route: 048
     Dates: start: 20000911, end: 20010130
  2. ASPIRIN [Concomitant]
  3. LEVAQUIN [Concomitant]
  4. PHENAZOPYRIDINE [Concomitant]
     Dosage: DRUG REPORTED AS PHENAZOPYRID.
     Route: 065
  5. TETRACYCLINE [Concomitant]
     Route: 048

REACTIONS (17)
  - Colitis ulcerative [Unknown]
  - Gastrointestinal injury [Unknown]
  - Inflammatory bowel disease [Unknown]
  - Haemorrhoids [Unknown]
  - Depression [Unknown]
  - Intestinal haemorrhage [Unknown]
  - Polyp [Unknown]
  - Irritable bowel syndrome [Unknown]
  - Cystitis interstitial [Unknown]
  - Herpes virus infection [Unknown]
  - Blood cholesterol increased [Unknown]
  - High density lipoprotein increased [Unknown]
  - Chapped lips [Unknown]
  - Acne [Unknown]
  - Cheilitis [Unknown]
  - Dry skin [Unknown]
  - Nasal dryness [Unknown]
